FAERS Safety Report 18360078 (Version 1)
Quarter: 2020Q4

REPORT INFORMATION
  Report Type: Spontaneous
  Country: US (occurrence: US)
  Receive Date: 20201008
  Receipt Date: 20201008
  Transmission Date: 20210114
  Serious: No
  Sender: FDA-Public Use
  Company Number: US-MYLANLABS-2020M1082555

PATIENT
  Sex: Male
  Weight: 95 kg

DRUGS (1)
  1. MUSE [Suspect]
     Active Substance: ALPROSTADIL
     Indication: SEXUAL DYSFUNCTION
     Dosage: UNK
     Route: 066

REACTIONS (1)
  - Drug ineffective [Not Recovered/Not Resolved]
